FAERS Safety Report 8084514-1 (Version None)
Quarter: 2012Q1

REPORT INFORMATION
  Report Type: 
  Country: None (occurrence: None)
  Receive Date: 20120128
  Receipt Date: 20110331
  Transmission Date: 20120608
  Serious: No
  Sender: FDA-Public Use
  Company Number: US-ABBOTT-11P-163-0716618-00

PATIENT
  Sex: Female
  Weight: 61.29 kg

DRUGS (8)
  1. COLAZAL [Concomitant]
     Indication: CROHN'S DISEASE
  2. ATENOLOL [Concomitant]
     Indication: HYPERTENSION
  3. OMEPRAZOLE [Concomitant]
     Indication: GASTROOESOPHAGEAL REFLUX DISEASE
  4. PAMELOR [Concomitant]
     Indication: DEPRESSION
  5. SIMVASTATIN [Concomitant]
     Indication: BLOOD CHOLESTEROL INCREASED
  6. LISINOPRIL [Concomitant]
     Indication: HYPERTENSION
  7. CLONOPIN [Concomitant]
     Indication: ANXIETY
  8. HUMIRA [Suspect]
     Indication: CROHN'S DISEASE
     Dates: start: 20100801

REACTIONS (2)
  - FEELING COLD [None]
  - HYPOAESTHESIA [None]
